FAERS Safety Report 15074045 (Version 1)
Quarter: 2018Q2

REPORT INFORMATION
  Report Type: Spontaneous
  Country: GB (occurrence: GB)
  Receive Date: 20180627
  Receipt Date: 20180627
  Transmission Date: 20180711
  Serious: Yes (Life-Threatening, Hospitalization)
  Sender: FDA-Public Use
  Company Number: GB-TEVA-2018-GB-912166

PATIENT
  Age: 41 Year
  Sex: Female

DRUGS (10)
  1. EVACAL D3 CHEWABLE [Concomitant]
     Dosage: 1500MG/400UNIT
  2. OXYNORM [Concomitant]
     Active Substance: OXYCODONE HYDROCHLORIDE
     Indication: HEADACHE
     Dosage: 5ML LIQUID/5ML ORAL SOLUTION
  3. SUMATRIPTAN. [Concomitant]
     Active Substance: SUMATRIPTAN
     Dosage: 20MG/0.1ML ?AS DIRECTED
     Route: 045
  4. ZOPICLONE [Concomitant]
     Active Substance: ZOPICLONE
     Dosage: ONE AT NIGHT
  5. FERROUS FUMARATE [Concomitant]
     Active Substance: FERROUS FUMARATE
     Dosage: 210 MILLIGRAM DAILY;
  6. OMEPRAZOLE. [Concomitant]
     Active Substance: OMEPRAZOLE
     Dosage: 20 MILLIGRAM DAILY;
  7. DOCUSATE [Concomitant]
     Active Substance: DOCUSATE
     Dosage: 1-2 TWICE A DAY
  8. CYCLIZINE [Concomitant]
     Active Substance: CYCLIZINE
     Dosage: 1 TO BE TAKEN UP TO 3 TIMES A DAY
  9. VERAPAMIL [Suspect]
     Active Substance: VERAPAMIL HYDROCHLORIDE
     Indication: HEADACHE
     Dosage: 40MG ONCE A DAY ?80 MG X 2 TWICE A DAY
  10. DIAZEPAM. [Concomitant]
     Active Substance: DIAZEPAM
     Dosage: 5 MILLIGRAM DAILY;

REACTIONS (2)
  - Cardiac arrest [Recovered/Resolved]
  - Atrioventricular block complete [Unknown]
